FAERS Safety Report 16720734 (Version 1)
Quarter: 2019Q3

REPORT INFORMATION
  Report Type: Spontaneous
  Country: US (occurrence: US)
  Receive Date: 20190703
  Receipt Date: 20190703
  Transmission Date: 20191005
  Serious: No
  Sender: FDA-Public Use
  Company Number: None

PATIENT
  Age: 82 Year
  Sex: Male

DRUGS (1)
  1. MITOMYCIN INJ 40MG [Suspect]
     Active Substance: MITOMYCIN
     Indication: BLADDER CANCER
     Dosage: ?          OTHER FREQUENCY:UNKNOWN;?
     Route: 043
     Dates: start: 20190703

REACTIONS (1)
  - Off label use [None]

NARRATIVE: CASE EVENT DATE: 20190703
